FAERS Safety Report 16361761 (Version 1)
Quarter: 2019Q2

REPORT INFORMATION
  Report Type: Report from Study
  Country: None (occurrence: US)
  Receive Date: 20190528
  Receipt Date: 20190528
  Transmission Date: 20190711
  Serious: Yes (Other)
  Sender: FDA-Public Use
  Company Number: US-ABBVIE-19S-163-2794389-00

PATIENT
  Sex: Female

DRUGS (1)
  1. SYNTHROID [Suspect]
     Active Substance: LEVOTHYROXINE SODIUM
     Indication: PRODUCT USED FOR UNKNOWN INDICATION
     Route: 048

REACTIONS (14)
  - Obesity [Unknown]
  - Menstruation irregular [Unknown]
  - Musculoskeletal pain [Unknown]
  - Flank pain [Unknown]
  - Depression [Unknown]
  - Smear cervix abnormal [Unknown]
  - Hypothyroidism [Unknown]
  - Headache [Unknown]
  - Cardiometabolic syndrome [Unknown]
  - Anxiety [Unknown]
  - Glucose tolerance impaired [Unknown]
  - Hypertriglyceridaemia [Unknown]
  - Autoimmune thyroiditis [Unknown]
  - Asthma [Unknown]
